FAERS Safety Report 16820841 (Version 1)
Quarter: 2019Q3

REPORT INFORMATION
  Report Type: Spontaneous
  Country: FR (occurrence: FR)
  Receive Date: 20190918
  Receipt Date: 20190918
  Transmission Date: 20191005
  Serious: Yes (Other)
  Sender: FDA-Public Use
  Company Number: FR-BRISTOL-MYERS SQUIBB COMPANY-BMS-2019-088072

PATIENT
  Age: 69 Year
  Sex: Male
  Weight: 79 kg

DRUGS (2)
  1. OPDIVO [Suspect]
     Active Substance: NIVOLUMAB
     Indication: BRONCHIAL CARCINOMA
     Route: 041
     Dates: start: 20171026, end: 20190110
  2. IMETH [METHOTREXATE SODIUM] [Interacting]
     Active Substance: METHOTREXATE SODIUM
     Indication: CUTANEOUS T-CELL LYMPHOMA
     Dosage: 8 DOSAGE FORM, QWK
     Route: 048
     Dates: start: 20181201, end: 20190227

REACTIONS (3)
  - Weight decreased [Recovering/Resolving]
  - Lung disorder [Recovering/Resolving]
  - Dyspnoea [Recovering/Resolving]

NARRATIVE: CASE EVENT DATE: 20181212
